FAERS Safety Report 9637499 (Version 1)
Quarter: 2013Q4

REPORT INFORMATION
  Report Type: Spontaneous
  Country: US (occurrence: US)
  Receive Date: 20131022
  Receipt Date: 20131022
  Transmission Date: 20140711
  Serious: Yes (Other)
  Sender: FDA-Public Use
  Company Number: US-JNJFOC-20131007912

PATIENT
  Sex: Female

DRUGS (1)
  1. XARELTO [Suspect]
     Indication: ATRIAL FLUTTER
     Route: 048

REACTIONS (2)
  - Rotator cuff syndrome [Not Recovered/Not Resolved]
  - Drug prescribing error [Not Recovered/Not Resolved]
